FAERS Safety Report 12423673 (Version 1)
Quarter: 2016Q2

REPORT INFORMATION
  Report Type: Spontaneous
  Country: US (occurrence: US)
  Receive Date: 20160601
  Receipt Date: 20160601
  Transmission Date: 20160815
  Serious: No
  Sender: FDA-Public Use
  Company Number: US-NOVEN PHARMACEUTICALS, INC.-US2015000735

PATIENT
  Age: 25 Year
  Sex: Female

DRUGS (1)
  1. DAYTRANA [Suspect]
     Active Substance: METHYLPHENIDATE
     Indication: POSTURAL ORTHOSTATIC TACHYCARDIA SYNDROME
     Dosage: 15 MG, UNKNOWN
     Route: 062
     Dates: start: 201505

REACTIONS (6)
  - Off label use [Unknown]
  - Application site dryness [Unknown]
  - Application site pruritus [Unknown]
  - Application site irritation [Unknown]
  - Application site swelling [Unknown]
  - Application site erythema [Unknown]

NARRATIVE: CASE EVENT DATE: 201505
